FAERS Safety Report 9267481 (Version 2)
Quarter: 2013Q2

REPORT INFORMATION
  Report Type: Report from Study
  Country: US (occurrence: US)
  Receive Date: 20130502
  Receipt Date: 20130618
  Transmission Date: 20140414
  Serious: Yes (Hospitalization, Other)
  Sender: FDA-Public Use
  Company Number: US-ABBOTT-13P-163-1081496-00

PATIENT
  Age: 24 Year
  Sex: Male
  Weight: 65.83 kg

DRUGS (4)
  1. HUMIRA [Suspect]
     Indication: COLITIS ULCERATIVE
     Dosage: LOADING DOSE
     Dates: start: 20130416
  2. HUMIRA [Suspect]
     Route: 058
  3. LILADA [Concomitant]
     Indication: PRODUCT USED FOR UNKNOWN INDICATION
     Dosage: PILLS, IN THE AM
  4. PREDNISONE [Concomitant]
     Indication: COLITIS ULCERATIVE

REACTIONS (3)
  - Haematochezia [Recovered/Resolved]
  - Colitis ulcerative [Recovering/Resolving]
  - Anaemia [Unknown]
